FAERS Safety Report 25501721 (Version 1)
Quarter: 2025Q3

REPORT INFORMATION
  Report Type: Spontaneous
  Country: MX (occurrence: MX)
  Receive Date: 20250702
  Receipt Date: 20250702
  Transmission Date: 20251020
  Serious: Yes (Disabling)
  Sender: ROCHE
  Company Number: MX-ROCHE-10000316980

PATIENT
  Age: 46 Year
  Sex: Male
  Weight: 45 kg

DRUGS (1)
  1. OCREVUS [Suspect]
     Active Substance: OCRELIZUMAB
     Indication: Multiple sclerosis
     Dosage: OCREVUS SOL. FOR INFUS 30 MG / 1 ML
     Route: 042
     Dates: start: 20240211

REACTIONS (4)
  - Throat tightness [Recovered/Resolved]
  - Sinusitis [Recovered/Resolved]
  - Weight decreased [Recovering/Resolving]
  - Pharyngitis [Recovered/Resolved]

NARRATIVE: CASE EVENT DATE: 20250301
